FAERS Safety Report 23935192 (Version 1)
Quarter: 2024Q2

REPORT INFORMATION
  Report Type: Report from Study
  Country: ES (occurrence: ES)
  Receive Date: 20240604
  Receipt Date: 20240604
  Transmission Date: 20240715
  Serious: Yes (Life-Threatening, Hospitalization)
  Sender: FDA-Public Use
  Company Number: ES-AMGEN-ESPNI2024106554

PATIENT
  Age: 57 Year
  Sex: Male
  Weight: 86.5 kg

DRUGS (1)
  1. ADALIMUMAB [Suspect]
     Active Substance: ADALIMUMAB\ISOPROPYL ALCOHOL
     Indication: Psoriasis
     Dosage: 40MG EVERY 14 DAYS
     Route: 058
     Dates: start: 20220601, end: 20240314

REACTIONS (3)
  - Large intestine perforation [Recovering/Resolving]
  - Amoebiasis [Recovering/Resolving]
  - Abdominal sepsis [Recovering/Resolving]

NARRATIVE: CASE EVENT DATE: 20240417
